FAERS Safety Report 9750080 (Version 1)
Quarter: 2013Q4

REPORT INFORMATION
  Report Type: Spontaneous
  Country: GB (occurrence: GB)
  Receive Date: 20131212
  Receipt Date: 20131212
  Transmission Date: 20140711
  Serious: Yes (Hospitalization)
  Sender: FDA-Public Use
  Company Number: PHHY2013GB143565

PATIENT
  Age: 75 Year
  Sex: Female

DRUGS (6)
  1. PIOGLITAZONE [Suspect]
     Dosage: 15 MG, QD
     Route: 048
     Dates: start: 20131106
  2. ADCAL-D3 [Concomitant]
     Dosage: 1 DF, BID
     Route: 048
  3. PERINDOPRIL ERBUMINE [Concomitant]
     Dosage: 4 MG, QD
     Route: 048
  4. GLUCOBAY [Concomitant]
     Dosage: 100 MG, TID
     Route: 048
  5. FUROSEMIDE [Concomitant]
     Dosage: 40 MG, BID
     Route: 048
  6. ANASTROZOLE [Concomitant]
     Dosage: 1 MG, QD
     Route: 048

REACTIONS (3)
  - Renal impairment [Unknown]
  - Renal failure acute [Unknown]
  - Liver function test abnormal [Recovering/Resolving]
